FAERS Safety Report 5121375-4 (Version None)
Quarter: 2006Q4

REPORT INFORMATION
  Report Type: 
  Country: None (occurrence: None)
  Receive Date: 20061002
  Receipt Date: 20060918
  Transmission Date: 20070319
  Serious: Yes (Hospitalization)
  Sender: FDA-Public Use
  Company Number: US200608003616

PATIENT
  Sex: Female

DRUGS (4)
  1. HUMALOG [Suspect]
     Indication: DIABETES MELLITUS
     Dosage: AS NEEDED,
  2. ALTACE [Concomitant]
  3. PROTONIX [Concomitant]
  4. LANTUS [Concomitant]

REACTIONS (1)
  - NEPHROLITHIASIS [None]
